FAERS Safety Report 7965582-1 (Version None)
Quarter: 2011Q4

REPORT INFORMATION
  Report Type: 
  Country: None (occurrence: None)
  Receive Date: 20111208
  Receipt Date: 20111130
  Transmission Date: 20120403
  Serious: Yes (Other)
  Sender: FDA-Public Use
  Company Number: GB-JNJFOC-20111201263

PATIENT
  Age: 18 Year
  Sex: Female

DRUGS (2)
  1. TRINOVUM [Suspect]
     Indication: CONTRACEPTION
     Route: 048
     Dates: start: 20110101
  2. PENICILLIN [Suspect]
     Indication: PRODUCT USED FOR UNKNOWN INDICATION
     Route: 065

REACTIONS (5)
  - DRUG DOSE OMISSION [None]
  - INFECTIOUS MONONUCLEOSIS [None]
  - HYPOMENORRHOEA [None]
  - INAPPROPRIATE SCHEDULE OF DRUG ADMINISTRATION [None]
  - METRORRHAGIA [None]
